FAERS Safety Report 10232418 (Version 2)
Quarter: 2014Q2

REPORT INFORMATION
  Report Type: Spontaneous
  Country: IT (occurrence: IT)
  Receive Date: 20140612
  Receipt Date: 20140612
  Transmission Date: 20141212
  Serious: Yes (Other)
  Sender: FDA-Public Use
  Company Number: IT-ABBOTT-13X-083-1161337-00

PATIENT
  Age: 69 Year
  Sex: Female

DRUGS (2)
  1. RYTMONORM [Suspect]
     Indication: PRODUCT USED FOR UNKNOWN INDICATION
     Route: 048
     Dates: start: 20131015, end: 20131022
  2. RIVAROXABAN [Concomitant]
     Indication: PRODUCT USED FOR UNKNOWN INDICATION

REACTIONS (8)
  - Dilatation ventricular [Unknown]
  - Presyncope [Recovering/Resolving]
  - Sinus bradycardia [Recovering/Resolving]
  - Unevaluable event [Unknown]
  - Pulmonary hypertension [Unknown]
  - Unevaluable event [Unknown]
  - Hyperhidrosis [Unknown]
  - Overdose [Unknown]
